FAERS Safety Report 21341053 (Version 1)
Quarter: 2022Q3

REPORT INFORMATION
  Report Type: Report from Study
  Country: CN (occurrence: CN)
  Receive Date: 20220916
  Receipt Date: 20220916
  Transmission Date: 20221027
  Serious: Yes (Other)
  Sender: FDA-Public Use
  Company Number: CN-JNJFOC-20220915248

PATIENT

DRUGS (5)
  1. RISPERIDONE [Suspect]
     Active Substance: RISPERIDONE
     Indication: Negative symptoms in schizophrenia
     Route: 065
  2. RISPERIDONE [Suspect]
     Active Substance: RISPERIDONE
     Dosage: AFTER 7 DAYS OF TREATMENT, THE DOSE WAS GRADUALLY INCREASED TO 2-4 MG PER DAY
     Route: 065
  3. RISPERIDONE [Suspect]
     Active Substance: RISPERIDONE
     Dosage: 4-6MG MG PER DAY IN THE SECOND WEEK
     Route: 065
  4. CLOZAPINE [Suspect]
     Active Substance: CLOZAPINE
     Indication: Negative symptoms in schizophrenia
     Dosage: RISPERIDONE IN COMBINATION WITH CLOZAPINE: 50 MG
     Route: 065
  5. CLOZAPINE [Suspect]
     Active Substance: CLOZAPINE
     Dosage: RISPERIDONE IN COMBINATION WITH CLOZAPINE: INCREASED TO 200-400 MG PER DAY WITHIN 2 WEEKS
     Route: 065

REACTIONS (6)
  - Arrhythmia [Unknown]
  - Dizziness [Unknown]
  - Constipation [Unknown]
  - Diarrhoea [Unknown]
  - Drug ineffective [Unknown]
  - Off label use [Unknown]
